FAERS Safety Report 5445993-9 (Version None)
Quarter: 2007Q3

REPORT INFORMATION
  Report Type: 
  Country: None (occurrence: None)
  Receive Date: 20070907
  Receipt Date: 20070903
  Transmission Date: 20080115
  Serious: Yes (Other)
  Sender: FDA-Public Use
  Company Number: US-JNJFOC-20070900138

PATIENT
  Age: 58 Year
  Sex: Male

DRUGS (1)
  1. LEVOFLOXACIN [Suspect]
     Indication: ANIMAL BITE
     Route: 065

REACTIONS (3)
  - BLOOD CREATINE PHOSPHOKINASE [None]
  - MUSCLE RIGIDITY [None]
  - RESPIRATORY DISTRESS [None]
